FAERS Safety Report 6265657-1 (Version None)
Quarter: 2009Q3

REPORT INFORMATION
  Report Type: 
  Country: None (occurrence: None)
  Receive Date: 20090709
  Receipt Date: 20090709
  Transmission Date: 20100115
  Serious: Yes (Life-Threatening, Hospitalization, Other)
  Sender: FDA-Public Use
  Company Number: None

PATIENT
  Age: 5 Month
  Sex: Female
  Weight: 8.5 kg

DRUGS (24)
  1. VORICONZAZOLE 10 MG/ML PFIZER [Suspect]
     Indication: FUNGAL INFECTION
     Dosage: 32 MG Q12H IV
     Route: 042
     Dates: start: 20090521, end: 20090617
  2. ACETYLCYSTEINE [Concomitant]
  3. ACYCLOVIR [Concomitant]
  4. ALBUTEROL [Concomitant]
  5. CEFTAZIDIME [Concomitant]
  6. CHLOROTHIAZIDE [Concomitant]
  7. CYCLOSPORINE [Concomitant]
  8. FUROSEMIDE [Concomitant]
  9. IMMUNE GLOBULIN INTRAVENOUS (HUMAN) [Concomitant]
  10. LORAZEPAM [Concomitant]
  11. SODIUM CHLORIDE [Concomitant]
  12. SPIRONOLACTONE [Concomitant]
  13. VANCOMYCIN-GENTAMICIN [Concomitant]
  14. ACETAMINOPHEN [Concomitant]
  15. BENZOCAINE [Concomitant]
  16. CHLORAL HYDRATE [Concomitant]
  17. DIPHENHYDRAMINE HCL [Concomitant]
  18. FENTANYL-100 [Concomitant]
  19. ISRADIPINE [Concomitant]
  20. OCULAR LUBRICANT [Concomitant]
  21. TPN/LUPIDS [Concomitant]
  22. HEPARIN [Concomitant]
  23. FENTANYL IV INFUSION [Concomitant]
  24. MIDAZOLAM IV INFUSION [Concomitant]

REACTIONS (4)
  - HEPATIC FAILURE [None]
  - IMMUNOSUPPRESSANT DRUG LEVEL INCREASED [None]
  - INTERNATIONAL NORMALISED RATIO INCREASED [None]
  - LIVER INJURY [None]
